FAERS Safety Report 7194674-2 (Version None)
Quarter: 2010Q4

REPORT INFORMATION
  Report Type: 
  Country: None (occurrence: None)
  Receive Date: 20101223
  Receipt Date: 20100917
  Transmission Date: 20110411
  Serious: No
  Sender: FDA-Public Use
  Company Number: US-AMGEN-KDL439280

PATIENT

DRUGS (2)
  1. ENBREL [Suspect]
     Indication: PSORIATIC ARTHROPATHY
     Dosage: 50 MG, QWK
     Route: 058
  2. TRIMETHOPRIM + SULFAMETHOXAZOLE [Concomitant]

REACTIONS (3)
  - BACK PAIN [None]
  - BURNING SENSATION [None]
  - RENAL PAIN [None]
